FAERS Safety Report 5603954-0 (Version None)
Quarter: 2008Q1

REPORT INFORMATION
  Report Type: 
  Country: None (occurrence: None)
  Receive Date: 20080128
  Receipt Date: 20080116
  Transmission Date: 20080703
  Serious: Yes (Other)
  Sender: FDA-Public Use
  Company Number: US-WYE-H02145908

PATIENT
  Sex: Male
  Weight: 82.97 kg

DRUGS (9)
  1. TIGECYCLINE [Suspect]
     Indication: ABDOMINAL INFECTION
     Dosage: 50 MG EVERY 12 HOURS
     Route: 042
     Dates: start: 20080105, end: 20080114
  2. ASPIRIN [Concomitant]
     Indication: CARDIOVASCULAR EVENT PROPHYLAXIS
     Dosage: 81 MG DAILY
     Route: 048
  3. ATORVASTATIN [Concomitant]
     Indication: BLOOD CHOLESTEROL INCREASED
     Dosage: 20 MG DAILY
     Route: 048
  4. NIFEDIPINE [Concomitant]
     Indication: HYPERTENSION
     Dosage: 120 MG DAILY
     Route: 048
     Dates: start: 20070330
  5. FERROUS SULFATE [Concomitant]
     Indication: MEDICAL DIET
     Dosage: UNKNOWN
     Route: 048
     Dates: start: 20070112
  6. LEVOTHYROXINE SODIUM [Concomitant]
     Indication: HYPOTHYROIDISM
     Dosage: 100 MCG DAILY
     Route: 048
     Dates: start: 20040603
  7. LISINOPRIL [Concomitant]
     Indication: HYPERTENSION
     Dosage: 5 MG DAILY
     Route: 048
     Dates: start: 20070330
  8. AMLODIPINE [Concomitant]
     Indication: HYPERTENSION
     Dosage: 5 MG DAILY
     Route: 048
  9. CITALOPRAM HYDROBROMIDE [Concomitant]
     Indication: DEPRESSION
     Dosage: 40 MG DAILY
     Route: 048
     Dates: start: 20041124

REACTIONS (1)
  - FUNGAEMIA [None]
